FAERS Safety Report 13608101 (Version 2)
Quarter: 2017Q2

REPORT INFORMATION
  Report Type: Spontaneous
  Country: US (occurrence: US)
  Receive Date: 20170602
  Receipt Date: 20170615
  Transmission Date: 20170830
  Serious: Yes (Hospitalization)
  Sender: FDA-Public Use
  Company Number: US-JAZZ-2017-US-006547

PATIENT
  Sex: Female

DRUGS (4)
  1. MORPHINE [Suspect]
     Active Substance: MORPHINE
     Indication: BACK DISORDER
     Dosage: 0.004 MG, QH
     Route: 037
     Dates: start: 20170523
  2. PRIALT [Suspect]
     Active Substance: ZICONOTIDE ACETATE
     Indication: PAIN
     Dosage: UNK ?G, QH
     Route: 037
  3. MORPHINE [Suspect]
     Active Substance: MORPHINE
     Indication: PAIN
     Dosage: UNK MG, QH
     Route: 037
  4. PRIALT [Suspect]
     Active Substance: ZICONOTIDE ACETATE
     Indication: BACK DISORDER

REACTIONS (5)
  - Drug ineffective [Unknown]
  - Device issue [Unknown]
  - Drug hypersensitivity [Unknown]
  - Carbon dioxide increased [Unknown]
  - Hypotension [Unknown]

NARRATIVE: CASE EVENT DATE: 2016
